FAERS Safety Report 4273764-8 (Version None)
Quarter: 2004Q1

REPORT INFORMATION
  Report Type: 
  Country: None (occurrence: None)
  Receive Date: 20040114
  Receipt Date: 20031219
  Transmission Date: 20041129
  Serious: Yes (Death)
  Sender: FDA-Public Use
  Company Number: 6968

PATIENT

DRUGS (1)
  1. METHOTREXATE [Suspect]
     Indication: BONE SARCOMA

REACTIONS (1)
  - DEATH [None]
